FAERS Safety Report 7492678-3 (Version None)
Quarter: 2011Q2

REPORT INFORMATION
  Report Type: 
  Country: None (occurrence: None)
  Receive Date: 20110519
  Receipt Date: 20100514
  Transmission Date: 20111010
  Serious: Yes (Other)
  Sender: FDA-Public Use
  Company Number: DE-GENENTECH-318600

PATIENT
  Age: 82 Year
  Sex: Male

DRUGS (1)
  1. LUCENTIS [Suspect]
     Indication: AGE-RELATED MACULAR DEGENERATION
     Dosage: UNK
     Route: 031

REACTIONS (5)
  - OPTIC NERVE INFARCTION [None]
  - EMBOLISM ARTERIAL [None]
  - CAROTID ARTERY INSUFFICIENCY [None]
  - AMAUROSIS FUGAX [None]
  - VISUAL ACUITY REDUCED [None]
